FAERS Safety Report 22587394 (Version 1)
Quarter: 2023Q2

REPORT INFORMATION
  Report Type: Spontaneous
  Country: US (occurrence: US)
  Receive Date: 20230612
  Receipt Date: 20230612
  Transmission Date: 20230722
  Serious: Yes (Hospitalization, Other)
  Sender: FDA-Public Use
  Company Number: US-SA-POMP-1001935

PATIENT
  Age: 33 Year
  Sex: Male
  Weight: 40.823 kg

DRUGS (2)
  1. LUMIZYME [Suspect]
     Active Substance: ALGLUCOSIDASE ALFA
     Indication: Glycogen storage disease type II
     Dosage: UNK
     Route: 042
     Dates: start: 2006
  2. LUMIZYME [Suspect]
     Active Substance: ALGLUCOSIDASE ALFA
     Dosage: 950 MG, QOW
     Route: 042

REACTIONS (3)
  - Syncope [Recovered/Resolved]
  - Gastrointestinal infection [Unknown]
  - Supraventricular tachycardia [Recovered/Resolved]

NARRATIVE: CASE EVENT DATE: 20110101
